FAERS Safety Report 9015316 (Version 1)
Quarter: 2013Q1

REPORT INFORMATION
  Report Type: Spontaneous
  Country: DE (occurrence: None)
  Receive Date: 20130103
  Receipt Date: 20130103
  Transmission Date: 20140127
  Serious: Yes (Death)
  Sender: FDA-Public Use
  Company Number: GER/GER/12/0027178

PATIENT
  Age: 79 Year
  Sex: Male

DRUGS (5)
  1. METFORMIN (METFORMIN) [Suspect]
     Indication: DIABETES MELLITUS
     Route: 048
  2. PHENIPROCOUMON [Concomitant]
  3. RAMIPRIL (RAMIPRIL) [Concomitant]
  4. ALLOPURINOL [Concomitant]
  5. VALPROAT (VALOPRATE SODIUM) [Concomitant]

REACTIONS (3)
  - Lactic acidosis [None]
  - Renal failure acute [None]
  - Shock [None]
